FAERS Safety Report 9497155 (Version 1)
Quarter: 2013Q3

REPORT INFORMATION
  Report Type: Spontaneous
  Country: US (occurrence: None)
  Receive Date: 20130903
  Receipt Date: 20130903
  Transmission Date: 20140515
  Serious: No
  Sender: FDA-Public Use
  Company Number: None

PATIENT
  Age: 48 Year
  Sex: 0

DRUGS (1)
  1. OXYCONTIN [Suspect]
     Indication: PAIN
     Route: 048

REACTIONS (2)
  - Gastric disorder [None]
  - Drug ineffective [None]
